FAERS Safety Report 22274450 (Version 1)
Quarter: 2023Q2

REPORT INFORMATION
  Report Type: Report from Study
  Country: US (occurrence: US)
  Receive Date: 20230502
  Receipt Date: 20230502
  Transmission Date: 20230722
  Serious: Yes (Other)
  Sender: FDA-Public Use
  Company Number: US-BAYER-2023P007400

PATIENT
  Age: 44 Year
  Sex: Female
  Weight: 116.12 kg

DRUGS (4)
  1. ADEMPAS [Suspect]
     Active Substance: RIOCIGUAT
     Indication: Pulmonary arterial hypertension
     Dosage: UNK
     Dates: start: 20221208
  2. ADEMPAS [Suspect]
     Active Substance: RIOCIGUAT
     Indication: Pulmonary arterial hypertension
     Dosage: 1.5 MG, TID
     Route: 048
     Dates: start: 20230127
  3. TYVASO [Suspect]
     Active Substance: TREPROSTINIL
     Indication: Pulmonary arterial hypertension
     Dosage: 64 ?G, QID
     Route: 055
     Dates: start: 20220824
  4. AMLODIPINE [Concomitant]
     Active Substance: AMLODIPINE BESYLATE

REACTIONS (7)
  - Generalised oedema [Unknown]
  - Weight increased [Unknown]
  - Swelling of eyelid [Unknown]
  - Oedema peripheral [Recovered/Resolved]
  - Peripheral swelling [Unknown]
  - Oedema [Recovered/Resolved]
  - Swelling face [Unknown]

NARRATIVE: CASE EVENT DATE: 20230101
